FAERS Safety Report 13533179 (Version 2)
Quarter: 2017Q2

REPORT INFORMATION
  Report Type: Spontaneous
  Country: US (occurrence: US)
  Receive Date: 20170510
  Receipt Date: 20170525
  Transmission Date: 20170830
  Serious: No
  Sender: FDA-Public Use
  Company Number: US-BEH-2017080135

PATIENT
  Sex: Male

DRUGS (3)
  1. MONONINE [Suspect]
     Active Substance: COAGULATION FACTOR IX HUMAN
     Dosage: UNK
     Route: 065
     Dates: start: 20160616
  2. MONONINE [Suspect]
     Active Substance: COAGULATION FACTOR IX HUMAN
     Dosage: 8190 UNK, PRN
     Route: 042
     Dates: start: 20170417
  3. MONONINE [Suspect]
     Active Substance: COAGULATION FACTOR IX HUMAN
     Indication: FACTOR IX DEFICIENCY
     Dosage: 4095 UNK, BIW
     Route: 042
     Dates: start: 20160616

REACTIONS (1)
  - No adverse event [Recovered/Resolved]
